FAERS Safety Report 8081736-0 (Version None)
Quarter: 2012Q1

REPORT INFORMATION
  Report Type: 
  Country: None (occurrence: None)
  Receive Date: 20120130
  Receipt Date: 20120124
  Transmission Date: 20120608
  Serious: Yes (Life-Threatening, Other)
  Sender: FDA-Public Use
  Company Number: IT-ELI_LILLY_AND_COMPANY-IT201105006801

PATIENT
  Sex: Female

DRUGS (4)
  1. CARBOPLATIN [Concomitant]
     Indication: BREAST CANCER METASTATIC
     Dosage: 311 MG, UNKNOWN
     Route: 042
     Dates: start: 20110223, end: 20110223
  2. ONDANSETRON HCL [Concomitant]
     Dosage: 24 MG, UNKNOWN
     Route: 065
  3. GEMZAR [Suspect]
     Indication: BREAST CANCER METASTATIC
     Dosage: 1500 MG, UNKNOWN
     Route: 042
     Dates: start: 20110223, end: 20110223
  4. DEXAMETHASONE SODIUM PHOSPHATE [Concomitant]
     Dosage: 12 MG, UNKNOWN
     Route: 065

REACTIONS (3)
  - EPISTAXIS [None]
  - PETECHIAE [None]
  - THROMBOCYTOPENIA [None]
